FAERS Safety Report 4689115-0 (Version None)
Quarter: 2005Q2

REPORT INFORMATION
  Report Type: 
  Country: None (occurrence: None)
  Receive Date: 20050613
  Receipt Date: 20050601
  Transmission Date: 20051028
  Serious: Yes (Life-Threatening)
  Sender: FDA-Public Use
  Company Number: 2005AP03208

PATIENT
  Age: 29 Year
  Sex: Female

DRUGS (1)
  1. CARBOCAIN [Suspect]
     Indication: INFILTRATION ANAESTHESIA

REACTIONS (3)
  - ASTHMA [None]
  - CONDITION AGGRAVATED [None]
  - CYANOSIS [None]
